FAERS Safety Report 17251665 (Version 1)
Quarter: 2019Q4

REPORT INFORMATION
  Report Type: Spontaneous
  Country: US (occurrence: US)
  Receive Date: 20191216
  Receipt Date: 20191216
  Transmission Date: 20200122
  Serious: No
  Sender: FDA-Public Use
  Company Number: None

PATIENT
  Age: 62 Year
  Sex: Female

DRUGS (1)
  1. ENBREL [Suspect]
     Active Substance: ETANERCEPT
     Indication: RHEUMATOID ARTHRITIS
     Dosage: ENBRELMINI 50MG/1ML(50MG)

REACTIONS (2)
  - Rheumatoid arthritis [None]
  - Malaise [None]

NARRATIVE: CASE EVENT DATE: 20191216
